FAERS Safety Report 24640846 (Version 1)
Quarter: 2024Q4

REPORT INFORMATION
  Report Type: Spontaneous
  Country: CA (occurrence: CA)
  Receive Date: 20241120
  Receipt Date: 20241120
  Transmission Date: 20250114
  Serious: Yes (Other)
  Sender: Unknown Manufacturer
  Company Number: CA-862174955-ML2024-05976

PATIENT
  Age: 76 Year
  Sex: Male

DRUGS (1)
  1. RANOLAZINE [Suspect]
     Active Substance: RANOLAZINE
     Indication: Angina pectoris
     Dosage: DOSE: 01 TABLET BY MOUTH TWICE DAILY
     Route: 048
     Dates: start: 20241025

REACTIONS (2)
  - Angina pectoris [Unknown]
  - Chromaturia [Unknown]

NARRATIVE: CASE EVENT DATE: 20240101
